FAERS Safety Report 4538095-7 (Version None)
Quarter: 2004Q4

REPORT INFORMATION
  Report Type: 
  Country: None (occurrence: None)
  Receive Date: 20041223
  Receipt Date: 20041223
  Transmission Date: 20050328
  Serious: No
  Sender: FDA-Public Use
  Company Number: None

PATIENT
  Age: 56 Year
  Sex: Female

DRUGS (1)
  1. CITALOPRAM [Suspect]
     Indication: DEPRESSION
     Dosage: 1/2  TAB  EVERYDAY
     Dates: start: 20041120, end: 20041210

REACTIONS (2)
  - ANXIETY [None]
  - DISTURBANCE IN ATTENTION [None]
